FAERS Safety Report 10089337 (Version 1)
Quarter: 2014Q2

REPORT INFORMATION
  Report Type: Spontaneous
  Country: US (occurrence: None)
  Receive Date: 20140418
  Receipt Date: 20140418
  Transmission Date: 20141212
  Serious: Yes (Death, Congenital Anomaly)
  Sender: FDA-Public Use
  Company Number: None

PATIENT
  Age: 22 Year
  Sex: Female
  Weight: 51.26 kg

DRUGS (4)
  1. LISINOPRIL 10MG [Suspect]
     Indication: DIABETES MELLITUS
     Dosage: 1 TABLET QD ORAL
     Route: 048
  2. METFORMIN [Concomitant]
  3. PRENATAL VITAMINS [Concomitant]
  4. CALCIUM WITH VIT D [Concomitant]

REACTIONS (3)
  - Medication error [None]
  - Exposure during pregnancy [None]
  - Foetal death [None]
